FAERS Safety Report 9699313 (Version 3)
Quarter: 2015Q3

REPORT INFORMATION
  Report Type: Spontaneous
  Country: US (occurrence: US)
  Receive Date: 20131120
  Receipt Date: 20150803
  Transmission Date: 20151125
  Serious: No
  Sender: FDA-Public Use
  Company Number: US-GILEAD-2008-0015221

PATIENT
  Age: 66 Year
  Sex: Female

DRUGS (6)
  1. OXYGEN. [Concomitant]
     Active Substance: OXYGEN
     Dosage: CONT.
  2. LETAIRIS [Suspect]
     Active Substance: AMBRISENTAN
     Indication: PULMONARY ARTERIAL HYPERTENSION
     Dates: start: 20070907, end: 20071213
  3. MULTIVITAMIN [Concomitant]
     Active Substance: VITAMINS
  4. SYNTHROID [Concomitant]
     Active Substance: LEVOTHYROXINE SODIUM
  5. OSCAL [Concomitant]
     Active Substance: CALCIUM CARBONATE
  6. DILTIAZEM [Concomitant]
     Active Substance: DILTIAZEM
     Dates: start: 2006

REACTIONS (1)
  - Oedema peripheral [Unknown]
